FAERS Safety Report 25776273 (Version 1)
Quarter: 2025Q3

REPORT INFORMATION
  Report Type: Spontaneous
  Country: US (occurrence: US)
  Receive Date: 20250909
  Receipt Date: 20250909
  Transmission Date: 20251021
  Serious: No
  Sender: DOMPE FARMACEUTICI
  Company Number: US-FARMAPROD-202408-2993

PATIENT
  Age: 60 Year
  Sex: Female

DRUGS (11)
  1. OXERVATE [Suspect]
     Active Substance: CENEGERMIN-BKBJ
     Indication: Neurotrophic keratopathy
     Route: 047
     Dates: start: 20240819
  2. IVIZIA [Concomitant]
     Active Substance: POVIDONE
  3. BLINK [Concomitant]
  4. CHONDROITIN SULFATE (BOVINE)\GLUCOSAMINE SULFATE [Concomitant]
     Active Substance: CHONDROITIN SULFATE (BOVINE)\GLUCOSAMINE SULFATE
  5. CALCIUM\CHOLECALCIFEROL [Concomitant]
     Active Substance: CALCIUM\CHOLECALCIFEROL
  6. LETROZOLE [Concomitant]
     Active Substance: LETROZOLE
  7. CLONAZEPAM [Concomitant]
     Active Substance: CLONAZEPAM
  8. XADAGO [Concomitant]
     Active Substance: SAFINAMIDE MESYLATE
  9. AMANTADINE [Concomitant]
     Active Substance: AMANTADINE
  10. GOCOVRI [Concomitant]
     Active Substance: AMANTADINE
  11. RYTARY [Concomitant]
     Active Substance: CARBIDOPA\LEVODOPA

REACTIONS (11)
  - Dry eye [Unknown]
  - Vision blurred [Unknown]
  - Product dose omission issue [Unknown]
  - Eye pruritus [Unknown]
  - Eye swelling [Unknown]
  - Lacrimation increased [Unknown]
  - Eye irritation [Unknown]
  - Foreign body sensation in eyes [Unknown]
  - Eyelid ptosis [Unknown]
  - Nasal oedema [Unknown]
  - Ocular hyperaemia [Unknown]

NARRATIVE: CASE EVENT DATE: 20240815
